FAERS Safety Report 5268678-0 (Version None)
Quarter: 2007Q1

REPORT INFORMATION
  Report Type: 
  Country: None (occurrence: None)
  Receive Date: 20070319
  Receipt Date: 20070314
  Transmission Date: 20070707
  Serious: Yes (Other)
  Sender: FDA-Public Use
  Company Number: CA-BRISTOL-MYERS SQUIBB COMPANY-13714423

PATIENT
  Age: 66 Year
  Sex: Female

DRUGS (6)
  1. ORENCIA [Suspect]
     Indication: RHEUMATOID ARTHRITIS
     Route: 042
     Dates: start: 20070213, end: 20070213
  2. ALTACE [Concomitant]
  3. SYNTHROID [Concomitant]
  4. SOTALOL HYDROCHLORIDE [Concomitant]
  5. HYDROCHLOROTHIAZIDE [Concomitant]
  6. ASPIRIN [Concomitant]

REACTIONS (2)
  - FALL [None]
  - HIP FRACTURE [None]
